FAERS Safety Report 7472816-9 (Version None)
Quarter: 2011Q1

REPORT INFORMATION
  Report Type: 
  Country: None (occurrence: None)
  Receive Date: 20110302
  Receipt Date: 20101019
  Transmission Date: 20110831
  Serious: Yes (Hospitalization, Other)
  Sender: FDA-Public Use
  Company Number: 163-21880-10060083

PATIENT
  Age: 70 Year
  Sex: Female

DRUGS (9)
  1. MEGACE [Concomitant]
  2. VICODIN [Concomitant]
  3. REVLIMID [Suspect]
  4. IBUPROFEN [Concomitant]
  5. DEXAMETHASONE [Concomitant]
  6. REVLIMID [Suspect]
     Indication: MULTIPLE MYELOMA
     Dosage: 25 MG, QD X 21 DAYS THEN 7 DAYS OFF, PO; 25 MG, QOD, PO; 25 MG, QOD X 14 DAYS EVERY 21 DAYS, PO
     Route: 048
     Dates: start: 20100414, end: 20100716
  7. REVLIMID [Suspect]
     Indication: MULTIPLE MYELOMA
     Dosage: 25 MG, QD X 21 DAYS THEN 7 DAYS OFF, PO; 25 MG, QOD, PO; 25 MG, QOD X 14 DAYS EVERY 21 DAYS, PO
     Route: 048
     Dates: start: 20100730, end: 20100910
  8. REVLIMID [Suspect]
     Indication: MULTIPLE MYELOMA
     Dosage: 25 MG, QD X 21 DAYS THEN 7 DAYS OFF, PO; 25 MG, QOD, PO; 25 MG, QOD X 14 DAYS EVERY 21 DAYS, PO
     Route: 048
     Dates: start: 20100910
  9. COUMADIN [Concomitant]

REACTIONS (8)
  - URINARY TRACT INFECTION [None]
  - RENAL FAILURE [None]
  - RED BLOOD CELL COUNT DECREASED [None]
  - FATIGUE [None]
  - HYPERCALCAEMIA [None]
  - PHLEBITIS SUPERFICIAL [None]
  - PHLEBITIS [None]
  - DEHYDRATION [None]
